FAERS Safety Report 8269157-9 (Version None)
Quarter: 2012Q2

REPORT INFORMATION
  Report Type: 
  Country: None (occurrence: None)
  Receive Date: 20120409
  Receipt Date: 20120402
  Transmission Date: 20120825
  Serious: No
  Sender: FDA-Public Use
  Company Number: US-B.I. PHARMACEUTICALS,INC./RIDGEFIELD-2012-BP-06122BP

PATIENT
  Sex: Female

DRUGS (3)
  1. PREDNISONE [Concomitant]
     Route: 048
     Dates: end: 20120326
  2. COMBIVENT [Suspect]
     Dates: start: 20120331
  3. ALBUTEROL [Concomitant]
     Route: 055
     Dates: start: 20120303

REACTIONS (2)
  - STOMATITIS [None]
  - EPISTAXIS [None]
